FAERS Safety Report 8009106-1 (Version None)
Quarter: 2011Q4

REPORT INFORMATION
  Report Type: 
  Country: None (occurrence: None)
  Receive Date: 20111227
  Receipt Date: 20111220
  Transmission Date: 20120403
  Serious: Yes (Death, Hospitalization, Other)
  Sender: FDA-Public Use
  Company Number: US-CELGENEUS-163-21880-11080553

PATIENT
  Sex: Female

DRUGS (23)
  1. REVLIMID [Suspect]
     Indication: MYELODYSPLASTIC SYNDROME
     Dosage: 5 MILLIGRAM
     Route: 048
     Dates: start: 20101020, end: 20110810
  2. COD LIVER OIL [Concomitant]
     Route: 065
  3. AVAPRO [Concomitant]
     Dosage: 150 MILLIGRAM
     Route: 065
  4. BENICAR [Concomitant]
     Dosage: 20 MILLIGRAM
     Route: 048
  5. FENTANYL [Concomitant]
     Indication: PAIN MANAGEMENT
     Dosage: 12 MILLIGRAM
     Route: 065
     Dates: start: 20110411
  6. ARICEPT [Concomitant]
     Dosage: 5 MILLIGRAM
     Route: 048
  7. COMBIVENT [Concomitant]
     Route: 065
  8. CALCIUM ACETATE [Concomitant]
     Dosage: 1210 MILLIGRAM
     Route: 048
  9. BENADRYL [Concomitant]
     Dosage: 25 MILLIGRAM
     Route: 065
  10. VITAMIN C [Concomitant]
     Route: 065
  11. VITAMIN B-12 [Concomitant]
     Route: 065
  12. MULTI-VITAMINS [Concomitant]
     Route: 065
  13. OMEPRAZOLE [Concomitant]
     Indication: GASTRIC ULCER
     Dosage: 20 MILLIGRAM
     Route: 048
  14. DILTIAZEM HCL [Concomitant]
     Dosage: 180 MILLIGRAM
     Route: 048
  15. METOPROLOL SUCCINATE [Concomitant]
     Dosage: 25 MILLIGRAM
     Route: 065
  16. METOPROLOL SUCCINATE [Concomitant]
     Dosage: 50 MILLIGRAM
     Route: 048
     Dates: start: 20110705
  17. SPIRIVA [Concomitant]
     Dosage: 18 MICROGRAM
     Route: 065
  18. BUSPAR [Concomitant]
     Dosage: 5 MILLIGRAM
     Route: 065
  19. BIDIL [Concomitant]
     Dosage: 20/37.5
     Route: 065
  20. ASPIRIN [Concomitant]
     Indication: THROMBOSIS PROPHYLAXIS
     Dosage: 81 MILLIGRAM
     Route: 065
  21. NEURONTIN [Concomitant]
     Dosage: 100 MILLIGRAM
     Route: 048
  22. METFORMIN [Concomitant]
     Dosage: 500 MILLIGRAM
     Route: 048
  23. FLOVENT [Concomitant]
     Dosage: 110 MILLIGRAM
     Route: 065

REACTIONS (7)
  - PANCYTOPENIA [None]
  - SPINAL COLUMN STENOSIS [None]
  - THROMBOPHLEBITIS SUPERFICIAL [None]
  - MYELODYSPLASTIC SYNDROME TRANSFORMATION [None]
  - ACUTE LEUKAEMIA [None]
  - THROMBOCYTOPENIA [None]
  - CANDIDIASIS [None]
